FAERS Safety Report 25229875 (Version 1)
Quarter: 2025Q2

REPORT INFORMATION
  Report Type: Spontaneous
  Country: US (occurrence: US)
  Receive Date: 20250423
  Receipt Date: 20250423
  Transmission Date: 20250716
  Serious: Yes (Other)
  Sender: ROCHE
  Company Number: US-ROCHE-10000262746

PATIENT
  Age: 68 Year
  Sex: Female
  Weight: 56.7 kg

DRUGS (5)
  1. LUCENTIS [Suspect]
     Active Substance: RANIBIZUMAB
     Indication: Neovascular age-related macular degeneration
     Route: 031
  2. CIMERLI [Suspect]
     Active Substance: RANIBIZUMAB-EQRN
     Indication: Neovascular age-related macular degeneration
     Dosage: MORE DOSAGE INFORMATION BOTH EYES
     Route: 031
     Dates: start: 20250319
  3. TRINTELLIX [Concomitant]
     Active Substance: VORTIOXETINE HYDROBROMIDE
     Route: 048
  4. LEVOTHYROXINE [Concomitant]
     Active Substance: LEVOTHYROXINE
     Route: 048
  5. ROSUVASTATIN [Concomitant]
     Active Substance: ROSUVASTATIN
     Indication: Blood cholesterol increased
     Route: 048

REACTIONS (3)
  - Blindness [Recovering/Resolving]
  - Intraocular pressure increased [Unknown]
  - Vision blurred [Unknown]
